FAERS Safety Report 7961486-9 (Version None)
Quarter: 2011Q4

REPORT INFORMATION
  Report Type: 
  Country: None (occurrence: None)
  Receive Date: 20111202
  Receipt Date: 20111124
  Transmission Date: 20120403
  Serious: Yes (Other)
  Sender: FDA-Public Use
  Company Number: 2011MA017031

PATIENT
  Age: 21 Year

DRUGS (3)
  1. MIRTAZAPINE [Suspect]
  2. MIRTAZAPINE [Suspect]
  3. ABILIFY [Suspect]
     Dosage: 30 MG

REACTIONS (1)
  - DEEP VEIN THROMBOSIS [None]
